FAERS Safety Report 14407878 (Version 1)
Quarter: 2018Q1

REPORT INFORMATION
  Report Type: Spontaneous
  Country: US (occurrence: US)
  Receive Date: 20180118
  Receipt Date: 20180118
  Transmission Date: 20180509
  Serious: Yes (Other)
  Sender: FDA-Public Use
  Company Number: US-REGENERON PHARMACEUTICALS, INC.-2018-10683

PATIENT

DRUGS (1)
  1. EYLEA [Suspect]
     Active Substance: AFLIBERCEPT
     Indication: NEOVASCULAR AGE-RELATED MACULAR DEGENERATION
     Dosage: 2MG/0.05ML, Q3M, LEFT EYE
     Dates: start: 20150709

REACTIONS (2)
  - Lung neoplasm malignant [Unknown]
  - Hospice care [Unknown]

NARRATIVE: CASE EVENT DATE: 20180102
